FAERS Safety Report 23039620 (Version 2)
Quarter: 2023Q4

REPORT INFORMATION
  Report Type: Spontaneous
  Country: IT (occurrence: IT)
  Receive Date: 20231006
  Receipt Date: 20231020
  Transmission Date: 20240110
  Serious: Yes (Other)
  Sender: FDA-Public Use
  Company Number: IT-MINISAL02-930841

PATIENT
  Age: 15 Year
  Sex: Female

DRUGS (4)
  1. LORAZEPAM [Suspect]
     Active Substance: LORAZEPAM
     Indication: Product used for unknown indication
     Dosage: 12 MILLIGRAM, UNK
     Route: 065
     Dates: start: 20230426, end: 20230426
  2. EBASTINE [Suspect]
     Active Substance: EBASTINE
     Indication: Product used for unknown indication
     Dosage: 40 MILLIGRAM, UNK
     Route: 065
     Dates: start: 20230426, end: 20230426
  3. SEROQUEL [Suspect]
     Active Substance: QUETIAPINE FUMARATE
     Indication: Product used for unknown indication
     Dosage: 150 MILLIGRAM, UNK
     Route: 065
     Dates: start: 20230426, end: 20230426
  4. VALPROATE SODIUM [Suspect]
     Active Substance: VALPROATE SODIUM
     Indication: Product used for unknown indication
     Dosage: 450 MILLIGRAM, UNK
     Route: 065
     Dates: start: 20230426, end: 20230426

REACTIONS (5)
  - Psychomotor hyperactivity [Not Recovered/Not Resolved]
  - Drug abuse [Recovered/Resolved]
  - Speech disorder [Not Recovered/Not Resolved]
  - Confusional state [Not Recovered/Not Resolved]
  - Intentional self-injury [Recovered/Resolved]

NARRATIVE: CASE EVENT DATE: 20230426
